FAERS Safety Report 8985189 (Version 6)
Quarter: 2014Q1

REPORT INFORMATION
  Report Type: Spontaneous
  Country: US (occurrence: US)
  Receive Date: 20121224
  Receipt Date: 20140319
  Transmission Date: 20141002
  Serious: Yes (Hospitalization, Other)
  Sender: FDA-Public Use
  Company Number: US-009507513-1212USA008449

PATIENT
  Sex: Female
  Weight: 58.96 kg

DRUGS (6)
  1. FOSAMAX [Suspect]
     Indication: OSTEOPENIA
     Dosage: 10 MG, QD
     Route: 048
     Dates: start: 19970410, end: 20061121
  2. FOSAMAX [Suspect]
     Dosage: 70 MG, QW
     Route: 048
     Dates: end: 201108
  3. FOSAMAX PLUS D [Suspect]
     Indication: OSTEOPENIA
     Dosage: 70 MG/2800 IU UNK
     Route: 048
     Dates: start: 20061122, end: 20080712
  4. ALENDRONATE SODIUM [Suspect]
     Indication: OSTEOPENIA
     Dosage: 70 MG, UNK
     Route: 048
     Dates: start: 20081022, end: 201108
  5. PAROXETINE [Concomitant]
     Indication: DEPRESSION
     Dosage: 10 MG, UNK
     Dates: start: 1994
  6. HORMONES (UNSPECIFIED) [Concomitant]
     Dosage: UNK
     Dates: start: 1994

REACTIONS (21)
  - Closed fracture manipulation [Unknown]
  - Femur fracture [Recovered/Resolved]
  - Sciatica [Unknown]
  - Burning sensation [Unknown]
  - Osteopenia [Unknown]
  - Osteoarthritis [Unknown]
  - Dyslipidaemia [Unknown]
  - Blood pressure abnormal [Unknown]
  - Fracture delayed union [Unknown]
  - Osteoporosis [Unknown]
  - Hypertension [Unknown]
  - Anaemia postoperative [Unknown]
  - Hypokalaemia [Unknown]
  - Polyarthritis [Unknown]
  - Depression [Unknown]
  - Anxiety [Unknown]
  - Hypoaesthesia [Unknown]
  - Back pain [Unknown]
  - Arthralgia [Unknown]
  - Constipation [Unknown]
  - Dyspepsia [Unknown]
